FAERS Safety Report 14448953 (Version 3)
Quarter: 2019Q4

REPORT INFORMATION
  Report Type: Spontaneous
  Country: ES (occurrence: ES)
  Receive Date: 20180126
  Receipt Date: 20191004
  Transmission Date: 20200122
  Serious: Yes (Other)
  Sender: FDA-Public Use
  Company Number: ES-MYLANLABS-2018M1005253

PATIENT
  Age: 81 Year
  Sex: Female

DRUGS (3)
  1. RIFAMPICIN [Suspect]
     Active Substance: RIFAMPIN
     Indication: PRODUCT USED FOR UNKNOWN INDICATION
     Dosage: UNK
  2. MINOCYCLINE [Suspect]
     Active Substance: MINOCYCLINE HYDROCHLORIDE
     Indication: STAPHYLOCOCCAL INFECTION
     Dosage: 100 MG, BID
     Route: 048
  3. CEFAZOLIN [Concomitant]
     Active Substance: CEFAZOLIN
     Indication: PRODUCT USED FOR UNKNOWN INDICATION
     Dosage: UNK, CONTINUED WITH INTRAVENOUS CEFAZOLIN UNTIL 8 WEEKS HAD PASSED
     Route: 042

REACTIONS (3)
  - Hypersensitivity [Unknown]
  - Toxic skin eruption [Unknown]
  - Skin hyperpigmentation [Recovering/Resolving]
